FAERS Safety Report 5944301-4 (Version None)
Quarter: 2008Q4

REPORT INFORMATION
  Report Type: 
  Country: None (occurrence: None)
  Receive Date: 20081105
  Receipt Date: 20081029
  Transmission Date: 20090506
  Serious: Yes (Life-Threatening, Hospitalization)
  Sender: FDA-Public Use
  Company Number: WAES 0810USA05271

PATIENT
  Age: 71 Year
  Sex: Male
  Weight: 75.7507 kg

DRUGS (14)
  1. CAP VORINOSTAT 100 MG [Suspect]
     Indication: ACUTE MYELOID LEUKAEMIA
     Dosage: 400 MG/DAILY/PO
     Route: 048
     Dates: start: 20080913, end: 20080926
  2. INFUSION (FORM) DECITIABINE [Suspect]
     Indication: ACUTE MYELOID LEUKAEMIA
     Dosage: IV
     Route: 042
     Dates: start: 20080908, end: 20080912
  3. ADVAIR DISKUS 100/50 [Concomitant]
  4. DARVON [Concomitant]
  5. LASIX [Concomitant]
  6. LEVAQUIN [Concomitant]
  7. LOPRESSOR [Concomitant]
  8. SYNTHROID [Concomitant]
  9. VFEND [Concomitant]
  10. ALLOPURINOL [Concomitant]
  11. ALLOPURINOL [Concomitant]
  12. COLCHICINE [Concomitant]
  13. MAGNESIUM (UNSPECIFIED) [Concomitant]
  14. POTASSIUM (UNSPECIFIED) [Concomitant]

REACTIONS (6)
  - CARDIAC ARREST [None]
  - ENDOCARDITIS [None]
  - FEBRILE NEUTROPENIA [None]
  - OEDEMA [None]
  - PNEUMONIA [None]
  - SEPSIS [None]
